FAERS Safety Report 16784855 (Version 1)
Quarter: 2019Q3

REPORT INFORMATION
  Report Type: Spontaneous
  Country: US (occurrence: US)
  Receive Date: 20190909
  Receipt Date: 20190909
  Transmission Date: 20191005
  Serious: No
  Sender: FDA-Public Use
  Company Number: US-SHIRE-US201929306

PATIENT
  Age: 47 Year
  Sex: Female

DRUGS (2)
  1. CUVITRU [Suspect]
     Active Substance: HUMAN IMMUNOGLOBULIN G
     Indication: PRODUCT USED FOR UNKNOWN INDICATION
     Dosage: 5 MILLIGRAM, 1X/WEEK
     Route: 042
  2. CUVITRU [Suspect]
     Active Substance: HUMAN IMMUNOGLOBULIN G
     Dosage: 7 MILLIGRAM, 1X/WEEK
     Route: 042

REACTIONS (4)
  - Insomnia [Unknown]
  - Infusion site swelling [Unknown]
  - Muscle spasms [Unknown]
  - Skin striae [Unknown]

NARRATIVE: CASE EVENT DATE: 20190904
